FAERS Safety Report 8340488-7 (Version None)
Quarter: 2012Q2

REPORT INFORMATION
  Report Type: 
  Country: None (occurrence: None)
  Receive Date: 20120507
  Receipt Date: 20090710
  Transmission Date: 20120825
  Serious: No
  Sender: FDA-Public Use
  Company Number: US-TEVA-2009008466

PATIENT

DRUGS (1)
  1. TREANDA [Suspect]
     Route: 042

REACTIONS (1)
  - LIVER FUNCTION TEST ABNORMAL [None]
